FAERS Safety Report 23493588 (Version 1)
Quarter: 2024Q1

REPORT INFORMATION
  Report Type: Spontaneous
  Country: US (occurrence: None)
  Receive Date: 20240206
  Receipt Date: 20240206
  Transmission Date: 20240410
  Serious: Yes (unspecified)
  Sender: FDA-Public Use
  Company Number: None

PATIENT
  Age: 35 Year
  Sex: Female
  Weight: 67.5 kg

DRUGS (10)
  1. INGREZZA [Suspect]
     Active Substance: VALBENAZINE
     Indication: Tardive dyskinesia
  2. AUSTEDO XR [Suspect]
     Active Substance: DEUTETRABENAZINE
  3. VYVANSE [Suspect]
     Active Substance: LISDEXAMFETAMINE DIMESYLATE
  4. DEXTROAMPHET SACCHARAT, AMPHET ASPARTATE, DEXTROAMPHET SULFATE AND AMP [Suspect]
     Active Substance: AMPHETAMINE ASPARTATE\AMPHETAMINE ASPARTATE MONOHYDRATE\AMPHETAMINE SULFATE\DEXTROAMPHETAMINE SACCHA
  5. SPRAVATO [Suspect]
     Active Substance: ESKETAMINE
  6. .DELTA.9-TETRAHYDROCANNABINOL\HERBALS [Suspect]
     Active Substance: .DELTA.9-TETRAHYDROCANNABINOL\HERBALS
  7. LEVETIRACETAM [Suspect]
     Active Substance: LEVETIRACETAM
  8. FLONASE [Concomitant]
     Active Substance: FLUTICASONE PROPIONATE
  9. KEPPRA XR [Concomitant]
     Active Substance: LEVETIRACETAM
  10. ZYRTEC [Concomitant]
     Active Substance: CETIRIZINE HYDROCHLORIDE

REACTIONS (7)
  - Palpitations [None]
  - Palpitations [None]
  - Cognitive disorder [None]
  - Memory impairment [None]
  - Fatigue [None]
  - Potentiating drug interaction [None]
  - Depression [None]

NARRATIVE: CASE EVENT DATE: 20240204
